FAERS Safety Report 5997612-0 (Version None)
Quarter: 2008Q4

REPORT INFORMATION
  Report Type: 
  Country: None (occurrence: None)
  Receive Date: 20081212
  Receipt Date: 20081201
  Transmission Date: 20090506
  Serious: Yes (Other)
  Sender: FDA-Public Use
  Company Number: NL-PFIZER INC-2008151340

PATIENT

DRUGS (1)
  1. NEURONTIN [Suspect]
     Dosage: 800 MG, 3X/DAY
     Route: 048

REACTIONS (2)
  - EPILEPSY [None]
  - SPEECH DISORDER [None]
